FAERS Safety Report 9335449 (Version 3)
Quarter: 2013Q3

REPORT INFORMATION
  Report Type: Spontaneous
  Country: US (occurrence: US)
  Receive Date: 20130605
  Receipt Date: 20130812
  Transmission Date: 20140515
  Serious: Yes (Other)
  Sender: FDA-Public Use
  Company Number: US-ALLERGAN-1307817US

PATIENT
  Age: 64 Year
  Sex: Female

DRUGS (11)
  1. ZYMAXID [Suspect]
     Indication: POSTOPERATIVE CARE
     Dosage: 1 GTT, Q4HR
     Route: 047
     Dates: start: 20130521, end: 20130521
  2. ZYMAXID [Suspect]
     Dosage: 1 GTT, QID
     Route: 047
     Dates: start: 20130522, end: 20130529
  3. DUREZOLE [Concomitant]
     Indication: PRODUCT USED FOR UNKNOWN INDICATION
     Route: 047
  4. MEDICATIONS NOS [Concomitant]
     Indication: PRODUCT USED FOR UNKNOWN INDICATION
  5. IPRATROPIUM [Concomitant]
     Indication: ASTHMA
  6. ZESTRIL [Concomitant]
     Indication: PRODUCT USED FOR UNKNOWN INDICATION
  7. PREDNISONE [Concomitant]
     Indication: PRODUCT USED FOR UNKNOWN INDICATION
     Dosage: 15 MG, UNKNOWN
  8. BENADRYL [Concomitant]
     Indication: PRODUCT USED FOR UNKNOWN INDICATION
  9. DIGOXIN [Concomitant]
     Indication: PRODUCT USED FOR UNKNOWN INDICATION
  10. LASIX [Concomitant]
     Indication: PRODUCT USED FOR UNKNOWN INDICATION
  11. ALUPENT [Concomitant]
     Indication: PRODUCT USED FOR UNKNOWN INDICATION

REACTIONS (8)
  - Dyspnoea [Recovering/Resolving]
  - Asthma [Recovering/Resolving]
  - Hypersensitivity [Not Recovered/Not Resolved]
  - Dizziness [Recovered/Resolved]
  - Headache [Not Recovered/Not Resolved]
  - Incorrect drug administration duration [Unknown]
  - Feeling abnormal [Recovered/Resolved]
  - Off label use [Unknown]
